FAERS Safety Report 15896323 (Version 1)
Quarter: 2019Q1

REPORT INFORMATION
  Report Type: Spontaneous
  Country: GB (occurrence: GB)
  Receive Date: 20190131
  Receipt Date: 20190131
  Transmission Date: 20190417
  Serious: Yes (Disabling, Other)
  Sender: FDA-Public Use
  Company Number: GB-TEVA-2019-GB-1005467

PATIENT
  Age: 20 Year
  Sex: Female
  Weight: 54.42 kg

DRUGS (2)
  1. EPILIM [Concomitant]
     Active Substance: VALPROATE SODIUM
     Indication: EPILEPSY
     Dosage: 1600 MILLIGRAM DAILY;
     Route: 048
     Dates: start: 1983, end: 20151110
  2. TEVA UK LAMOTRIGINE [Suspect]
     Active Substance: LAMOTRIGINE
     Dates: start: 2015

REACTIONS (2)
  - Contusion [Unknown]
  - Myoclonus [Unknown]

NARRATIVE: CASE EVENT DATE: 2015
